FAERS Safety Report 17183360 (Version 1)
Quarter: 2019Q4

REPORT INFORMATION
  Report Type: Spontaneous
  Country: CA (occurrence: CA)
  Receive Date: 20191220
  Receipt Date: 20191220
  Transmission Date: 20200122
  Serious: Yes (Death, Hospitalization, Other)
  Sender: FDA-Public Use
  Company Number: CA-TEVA-2019-CA-1155074

PATIENT
  Age: 55 Year
  Sex: Male

DRUGS (11)
  1. COSENTYX [Suspect]
     Active Substance: SECUKINUMAB
     Indication: PSORIASIS
     Route: 058
  2. COSENTYX [Suspect]
     Active Substance: SECUKINUMAB
     Route: 058
  3. PSORALEN(S) [Concomitant]
     Indication: PRODUCT USED FOR UNKNOWN INDICATION
     Route: 065
  4. ROSUVASTATIN. [Concomitant]
     Active Substance: ROSUVASTATIN
     Indication: PRODUCT USED FOR UNKNOWN INDICATION
     Route: 065
  5. CICLOSPORIN [Suspect]
     Active Substance: CYCLOSPORINE
     Indication: PRODUCT USED FOR UNKNOWN INDICATION
     Route: 065
  6. SPIRONOLACTONE. [Concomitant]
     Active Substance: SPIRONOLACTONE
     Indication: PRODUCT USED FOR UNKNOWN INDICATION
     Route: 065
  7. TAMSULOSIN [Suspect]
     Active Substance: TAMSULOSIN
     Indication: PROSTATIC DISORDER
     Route: 065
  8. AMLODIPINE [Concomitant]
     Active Substance: AMLODIPINE BESYLATE
     Indication: PRODUCT USED FOR UNKNOWN INDICATION
     Route: 065
  9. RAMIPRIL. [Concomitant]
     Active Substance: RAMIPRIL
     Indication: PRODUCT USED FOR UNKNOWN INDICATION
     Route: 065
  10. COSENTYX [Suspect]
     Active Substance: SECUKINUMAB
     Route: 058
  11. STELARA [Concomitant]
     Active Substance: USTEKINUMAB
     Indication: PRODUCT USED FOR UNKNOWN INDICATION
     Route: 065

REACTIONS (30)
  - Cough [Fatal]
  - Gastrointestinal bacterial infection [Fatal]
  - Musculoskeletal pain [Fatal]
  - Osteoarthritis [Fatal]
  - Panic attack [Fatal]
  - Secretion discharge [Fatal]
  - Sinusitis [Fatal]
  - Pancreatic carcinoma [Fatal]
  - Pyrexia [Fatal]
  - Respiratory tract infection [Fatal]
  - Hepatic cancer [Fatal]
  - Malaise [Fatal]
  - Asthenia [Fatal]
  - Bronchitis [Fatal]
  - Sputum discoloured [Fatal]
  - Constipation [Fatal]
  - Diarrhoea [Fatal]
  - Nausea [Fatal]
  - Productive cough [Fatal]
  - Wheezing [Fatal]
  - Back pain [Fatal]
  - Blood pressure decreased [Fatal]
  - Breath sounds abnormal [Fatal]
  - Death [Fatal]
  - Dyspepsia [Fatal]
  - Fatigue [Fatal]
  - Nasopharyngitis [Fatal]
  - Dysphagia [Fatal]
  - Vomiting [Fatal]
  - Arthralgia [Fatal]
